FAERS Safety Report 7577300-X (Version None)
Quarter: 2011Q2

REPORT INFORMATION
  Report Type: 
  Country: None (occurrence: None)
  Receive Date: 20110628
  Receipt Date: 20110511
  Transmission Date: 20111010
  Serious: No
  Sender: FDA-Public Use
  Company Number: US-BAYER-2011-042298

PATIENT
  Sex: Female

DRUGS (2)
  1. NITROGLYCERIN [Concomitant]
  2. ALEVE (CAPLET) [Suspect]
     Indication: HEADACHE
     Dosage: 5 DF, UNK
     Route: 048

REACTIONS (1)
  - NO ADVERSE EVENT [None]
